FAERS Safety Report 7965931-4 (Version None)
Quarter: 2011Q4

REPORT INFORMATION
  Report Type: 
  Country: None (occurrence: None)
  Receive Date: 20111208
  Receipt Date: 20111202
  Transmission Date: 20120403
  Serious: Yes (Other)
  Sender: FDA-Public Use
  Company Number: NZ-GLAXOSMITHKLINE-B0767738A

PATIENT
  Age: 7 Year
  Sex: Female

DRUGS (1)
  1. LAMICTAL [Suspect]
     Indication: PRODUCT USED FOR UNKNOWN INDICATION
     Route: 065

REACTIONS (6)
  - PARAESTHESIA [None]
  - PRURITUS [None]
  - TONGUE ULCERATION [None]
  - ORAL PAIN [None]
  - CHEST PAIN [None]
  - SYNCOPE [None]
